FAERS Safety Report 22612964 (Version 1)
Quarter: 2023Q2

REPORT INFORMATION
  Report Type: Report from Study
  Country: US (occurrence: US)
  Receive Date: 20230618
  Receipt Date: 20230618
  Transmission Date: 20230721
  Serious: Yes (Other)
  Sender: FDA-Public Use
  Company Number: US-JNJFOC-20230627838

PATIENT
  Sex: Male

DRUGS (4)
  1. ZYTIGA [Suspect]
     Active Substance: ABIRATERONE ACETATE
     Indication: Hormone-dependent prostate cancer
     Route: 048
  2. CABOZANTINIB [Suspect]
     Active Substance: CABOZANTINIB
     Indication: Hormone-dependent prostate cancer
     Dosage: 20 MG OR 40 MG DAILY (3+3 DOSE ESCALATION)
     Route: 065
  3. NIVOLUMAB [Suspect]
     Active Substance: NIVOLUMAB
     Indication: Hormone-dependent prostate cancer
     Route: 042
  4. PREDNISONE [Suspect]
     Active Substance: PREDNISONE
     Indication: Hormone-dependent prostate cancer
     Route: 065

REACTIONS (8)
  - Proteinuria [Unknown]
  - Toxicity to various agents [Unknown]
  - Lipase increased [Unknown]
  - Wound infection [Unknown]
  - Diarrhoea [Unknown]
  - Transaminases increased [Unknown]
  - Adrenal insufficiency [Unknown]
  - Hypertension [Unknown]
